FAERS Safety Report 23561244 (Version 1)
Quarter: 2024Q1

REPORT INFORMATION
  Report Type: Spontaneous
  Country: GB (occurrence: GB)
  Receive Date: 20240224
  Receipt Date: 20240224
  Transmission Date: 20240410
  Serious: Yes (Other)
  Sender: FDA-Public Use
  Company Number: GB-MHRA-MED-202402071302366420-PHBDY

PATIENT
  Age: 69 Year
  Sex: Female

DRUGS (2)
  1. EZETIMIBE [Suspect]
     Active Substance: EZETIMIBE
     Indication: Product used for unknown indication
     Dosage: 180MG/10MG; ;
     Route: 065
     Dates: start: 20240109, end: 20240207
  2. BEMPEDOIC ACID [Suspect]
     Active Substance: BEMPEDOIC ACID
     Indication: Product used for unknown indication
     Dosage: 180MG/10MG
     Route: 065
     Dates: start: 20240109, end: 20240207

REACTIONS (1)
  - Hyperglycaemia [Not Recovered/Not Resolved]
